FAERS Safety Report 11145307 (Version 3)
Quarter: 2015Q3

REPORT INFORMATION
  Report Type: Spontaneous
  Country: BR (occurrence: BR)
  Receive Date: 20150526
  Receipt Date: 20150728
  Transmission Date: 20151125
  Serious: Yes (Other)
  Sender: FDA-Public Use
  Company Number: BR-PFIZER INC-2015171700

PATIENT
  Age: 74 Year
  Sex: Male
  Weight: 69 kg

DRUGS (5)
  1. FRESH TEARS LIQUIGEL [Concomitant]
     Dosage: UNK, 4X/DAY
  2. XALATAN [Suspect]
     Active Substance: LATANOPROST
     Indication: CATARACT
     Dosage: UNK
  3. ZYMAR [Concomitant]
     Active Substance: GATIFLOXACIN
     Dosage: UNK
     Dates: start: 2014, end: 201507
  4. MAXIDEX [Concomitant]
     Active Substance: DEXAMETHASONE
     Indication: GLAUCOMA
     Dosage: 1 DROP IN BOTH EYES, DAILY
     Dates: start: 20150218
  5. XALATAN [Suspect]
     Active Substance: LATANOPROST
     Indication: GLAUCOMA
     Dosage: 1 DROP IN BOTH EYES, DAILY
     Route: 047
     Dates: start: 201503

REACTIONS (2)
  - Visual acuity reduced [Not Recovered/Not Resolved]
  - Product use issue [Not Recovered/Not Resolved]

NARRATIVE: CASE EVENT DATE: 201502
